FAERS Safety Report 12203123 (Version 1)
Quarter: 2016Q1

REPORT INFORMATION
  Report Type: Spontaneous
  Country: US (occurrence: None)
  Receive Date: 20160321
  Receipt Date: 20160321
  Transmission Date: 20160526
  Serious: Yes (Hospitalization)
  Sender: FDA-Public Use
  Company Number: None

PATIENT
  Age: 17 Year
  Sex: Male
  Weight: 75.3 kg

DRUGS (6)
  1. ONCASPAR [Suspect]
     Active Substance: PEGASPARGASE
     Dates: end: 20160223
  2. PREDNISONE. [Suspect]
     Active Substance: PREDNISONE
     Dates: end: 20160308
  3. CYTARABINE. [Suspect]
     Active Substance: CYTARABINE
     Dates: end: 20160219
  4. DAUNORUBICIN [Suspect]
     Active Substance: DAUNORUBICIN
     Dates: end: 20160304
  5. METHOTREXATE [Suspect]
     Active Substance: METHOTREXATE
     Dates: end: 20160227
  6. VINCRISTINE SULFATE. [Suspect]
     Active Substance: VINCRISTINE SULFATE
     Dates: end: 20160304

REACTIONS (15)
  - Otitis media [None]
  - Brain oedema [None]
  - Depressed level of consciousness [None]
  - Septic shock [None]
  - Encephalopathy [None]
  - Tachycardia [None]
  - Mastoiditis [None]
  - Brain abscess [None]
  - Pyrexia [None]
  - Confusional state [None]
  - Coagulopathy [None]
  - Abdominal pain [None]
  - Pseudomonas test positive [None]
  - Bradycardia [None]
  - Neutropenia [None]

NARRATIVE: CASE EVENT DATE: 20160309
